FAERS Safety Report 15158985 (Version 4)
Quarter: 2020Q1

REPORT INFORMATION
  Report Type: Spontaneous
  Country: DE (occurrence: DE)
  Receive Date: 20180718
  Receipt Date: 20200302
  Transmission Date: 20200409
  Serious: Yes (Other)
  Sender: FDA-Public Use
  Company Number: DE-MYLANLABS-2018M1051477

PATIENT
  Age: 20 Year
  Sex: Female

DRUGS (23)
  1. TACROLIMUS. [Suspect]
     Active Substance: TACROLIMUS
     Indication: PROPHYLAXIS AGAINST GRAFT VERSUS HOST DISEASE
  2. FLUDARABINE [Suspect]
     Active Substance: FLUDARABINE PHOSPHATE
     Dosage: 150 MILLILITRE PER SQUARE METRE(5 DOSAGES 30 MG/M2 DAILY)
  3. CYCLOPHOSPHAMIDE. [Suspect]
     Active Substance: CYCLOPHOSPHAMIDE
     Dosage: 29 MILLIGRAM/KILOGRAM, QD(2 DOSAGES 14.5 MG/KG DAILY )
  4. ALEMTUZUMAB [Suspect]
     Active Substance: ALEMTUZUMAB
     Indication: BONE MARROW CONDITIONING REGIMEN
     Dosage: 0.2 MG/KG, PER DAY, 0.2 MG/KG/DAY ON DAYS -9 AND -8
     Route: 065
  5. MYCOPHENOLATE MOFETIL. [Suspect]
     Active Substance: MYCOPHENOLATE MOFETIL
     Indication: STEM CELL TRANSPLANT
     Dosage: 15 MILLIGRAM/KILOGRAM, Q8H
  6. CYCLOPHOSPHAMIDE. [Suspect]
     Active Substance: CYCLOPHOSPHAMIDE
     Indication: BONE MARROW CONDITIONING REGIMEN
     Dosage: 50 MG/KG, BID, 2 X 50 MG/KG/DAY ON DAYS +3 AND +4
     Route: 065
  7. GRANULOCYTE COLONY STIMULATING FACTOR [Concomitant]
     Active Substance: GRANULOCYTE COLONY-STIMULATING FACTOR NOS
     Indication: PROPHYLAXIS AGAINST GRAFT VERSUS HOST DISEASE
     Dosage: 5 MICROGRAM, QD, 5 G/KG/DAY FROM DAY +5 UNTIL ENGRAFTMENT
  8. THIOTEPA. [Suspect]
     Active Substance: THIOTEPA
     Dosage: 5 MILLIGRAM/KILOGRAM, BID, 2X5 MG/KG/DAY ON DAY -4
  9. RITUXIMAB. [Concomitant]
     Active Substance: RITUXIMAB
     Dosage: UNK
  10. CYCLOPHOSPHAMIDE. [Suspect]
     Active Substance: CYCLOPHOSPHAMIDE
     Dosage: 50 MILLIGRAM/KILOGRAM, QD(50 MG/KG DAILY   )
     Route: 065
  11. HYDROXYCARBAMIDE [Concomitant]
     Active Substance: HYDROXYUREA
     Indication: SICKLE CELL DISEASE
     Dosage: UNK
     Route: 065
  12. TACROLIMUS. [Suspect]
     Active Substance: TACROLIMUS
     Indication: BONE MARROW CONDITIONING REGIMEN
     Dosage: FROM DAY +5 UNTIL DAY +100 AIMING AT PLASMA TROUGH
     Route: 065
  13. FLUDARABINE [Suspect]
     Active Substance: FLUDARABINE PHOSPHATE
     Indication: BONE MARROW CONDITIONING REGIMEN
     Dosage: 30 MG/M2, PER DAY
     Route: 065
  14. MYCOPHENOLATE MOFETIL. [Suspect]
     Active Substance: MYCOPHENOLATE MOFETIL
     Indication: PROPHYLAXIS AGAINST GRAFT VERSUS HOST DISEASE
  15. THIOTEPA. [Suspect]
     Active Substance: THIOTEPA
     Indication: BONE MARROW CONDITIONING REGIMEN
     Dosage: 20 MILLIGRAM/KILOGRAM, QD (DAILY DOSE: 20 MG/KG MILLIGRAM(S)/KILOGRAM EVERY DAY)
     Route: 065
  16. TREOSULFAN [Suspect]
     Active Substance: TREOSULFAN
     Indication: BONE MARROW CONDITIONING REGIMEN
     Dosage: 14 G/M2, 14 G/M2/DAY ON DAYS -7 TO -5
     Route: 065
  17. LEVETIRACETAM. [Concomitant]
     Active Substance: LEVETIRACETAM
     Indication: PROPHYLAXIS
     Dosage: UNK
  18. CYCLOPHOSPHAMIDE. [Suspect]
     Active Substance: CYCLOPHOSPHAMIDE
     Indication: STEM CELL TRANSPLANT
     Dosage: 14.5 MG/KG, QD, 14.5 MG/KG/DAY ON DAYS -3 AND -2
     Route: 065
  19. ALEMTUZUMAB [Suspect]
     Active Substance: ALEMTUZUMAB
     Dosage: 0.4 MILLIGRAM/KILOGRAM, QD(2 DOSAGES .2 MG/KG DAILY  )
  20. TREOSULFAN [Suspect]
     Active Substance: TREOSULFAN
     Dosage: 42000 MILLIGRAM/SQ. METER(3 DOSAGES 14000 MG/M2 DAILY   )
  21. TACROLIMUS. [Suspect]
     Active Substance: TACROLIMUS
     Indication: STEM CELL TRANSPLANT
     Dosage: UNK
     Route: 065
  22. MYCOPHENOLATE MOFETIL. [Suspect]
     Active Substance: MYCOPHENOLATE MOFETIL
     Indication: BONE MARROW CONDITIONING REGIMEN
     Dosage: DAILY DOSE: (15 MG/KG, PER DAY) 45 MG/KG MILLIGRAM(S)/KILOGRAM EVERY DAY
     Route: 065
  23. CYCLOPHOSPHAMIDE. [Suspect]
     Active Substance: CYCLOPHOSPHAMIDE
     Indication: PROPHYLAXIS AGAINST GRAFT VERSUS HOST DISEASE
     Dosage: UNK
     Route: 065

REACTIONS (4)
  - Varicella zoster virus infection [Unknown]
  - Lymphopenia [Unknown]
  - Citrobacter infection [Unknown]
  - Product use in unapproved indication [Unknown]
